FAERS Safety Report 14498169 (Version 2)
Quarter: 2018Q3

REPORT INFORMATION
  Report Type: Spontaneous
  Country: US (occurrence: US)
  Receive Date: 20180207
  Receipt Date: 20180720
  Transmission Date: 20181010
  Serious: Yes (Hospitalization, Disabling)
  Sender: FDA-Public Use
  Company Number: US-JNJFOC-20180205793

PATIENT
  Age: 44 Year
  Sex: Male

DRUGS (3)
  1. INVOKANA [Suspect]
     Active Substance: CANAGLIFLOZIN
     Indication: DIABETES MELLITUS
     Route: 048
     Dates: start: 201512
  2. INVOKAMET [Suspect]
     Active Substance: CANAGLIFLOZIN\METFORMIN HYDROCHLORIDE
     Indication: TYPE 2 DIABETES MELLITUS
     Route: 048
     Dates: start: 201606, end: 201612
  3. INVOKAMET [Suspect]
     Active Substance: CANAGLIFLOZIN\METFORMIN HYDROCHLORIDE
     Indication: TYPE 2 DIABETES MELLITUS
     Route: 048
     Dates: start: 201701, end: 201706

REACTIONS (7)
  - Diabetic foot [Unknown]
  - Wound dehiscence [Recovering/Resolving]
  - Leg amputation [Recovering/Resolving]
  - Wound [Unknown]
  - Neuropathic arthropathy [Unknown]
  - Abscess drainage [Unknown]
  - Foot operation [Unknown]

NARRATIVE: CASE EVENT DATE: 20160718
